FAERS Safety Report 7214669-X (Version None)
Quarter: 2011Q1

REPORT INFORMATION
  Report Type: 
  Country: None (occurrence: None)
  Receive Date: 20110105
  Receipt Date: 20110105
  Transmission Date: 20110831
  Serious: Yes (Other)
  Sender: FDA-Public Use
  Company Number: None

PATIENT
  Age: 68 Year
  Sex: Male

DRUGS (18)
  1. NEXIUM [Concomitant]
  2. LASIX [Concomitant]
  3. ADVAIR [Concomitant]
  4. IPRATROPRIUM [Concomitant]
  5. RESTORIL [Concomitant]
  6. MIRTAZAPINE [Concomitant]
  7. OXYCODONE HCL EXTENDED-RELEASE [Concomitant]
  8. LORTAB [Concomitant]
  9. MORPHINE [Concomitant]
  10. POTASSIUM CHLORIDE [Concomitant]
  11. XOPENEX [Concomitant]
  12. LIPITOR [Concomitant]
  13. DILTIAZEM [Concomitant]
  14. CLOPIDOGREL [Concomitant]
  15. ASPIRIN [Concomitant]
  16. COLACE [Concomitant]
  17. HEPARIN [Concomitant]
  18. GABAPENTIN [Suspect]
     Dosage: 300 MG TID PO
     Route: 048
     Dates: start: 20091101, end: 20091103

REACTIONS (2)
  - MENTAL STATUS CHANGES [None]
  - MYOCLONUS [None]
